FAERS Safety Report 22312093 (Version 2)
Quarter: 2023Q2

REPORT INFORMATION
  Report Type: Spontaneous
  Country: SE (occurrence: SE)
  Receive Date: 20230512
  Receipt Date: 20230520
  Transmission Date: 20230722
  Serious: Yes (Death, Hospitalization, Other)
  Sender: FDA-Public Use
  Company Number: SE-EMA-20150724-abhogalp-144456084

PATIENT
  Age: 31 Year
  Sex: Male
  Weight: 140 kg

DRUGS (11)
  1. TRAMADOL [Interacting]
     Active Substance: TRAMADOL
     Indication: Product used for unknown indication
     Dosage: UNK
     Route: 065
  2. BUPRENORPHINE [Interacting]
     Active Substance: BUPRENORPHINE
     Indication: Product used for unknown indication
     Dosage: UNK
     Route: 065
  3. CAFFEINE [Interacting]
     Active Substance: CAFFEINE
     Indication: Fat tissue increased
     Dosage: UNK
     Route: 065
  4. CLOMIPRAMINE [Interacting]
     Active Substance: CLOMIPRAMINE
     Indication: Attention deficit hyperactivity disorder
     Dosage: 375 MILLIGRAM, ONCE A DAY
     Route: 065
  5. DRONABINOL [Interacting]
     Active Substance: DRONABINOL
     Indication: Product used for unknown indication
     Dosage: UNK (9-TETRAHYDROCANNABINOL)
     Route: 065
  6. FLUNITRAZEPAM [Suspect]
     Active Substance: FLUNITRAZEPAM
     Indication: Attention deficit hyperactivity disorder
     Dosage: 1 MILLIGRAM, ONCE A DAY
     Route: 065
  7. LISDEXAMFETAMINE DIMESYLATE [Interacting]
     Active Substance: LISDEXAMFETAMINE DIMESYLATE
     Indication: Attention deficit hyperactivity disorder
     Dosage: 130 MILLIGRAM, ONCE A DAY
     Route: 065
  8. PROPOFOL [Concomitant]
     Active Substance: PROPOFOL
     Indication: Sedation
     Dosage: UNK
     Route: 065
  9. DANTROLENE SODIUM [Concomitant]
     Active Substance: DANTROLENE SODIUM
     Indication: Product used for unknown indication
     Dosage: UNK
     Route: 065
  10. DEXMEDETOMIDINE [Concomitant]
     Active Substance: DEXMEDETOMIDINE
     Indication: Sedation
     Dosage: UNK
     Route: 065
  11. HERBALS\TETRAHYDROCANNABINOL UNSPECIFIED [Suspect]
     Active Substance: HERBALS\TETRAHYDROCANNABINOL UNSPECIFIED

REACTIONS (13)
  - Hyperhidrosis [Fatal]
  - Adrenergic syndrome [Fatal]
  - Tachycardia [Fatal]
  - Confusional state [Fatal]
  - Seizure [Fatal]
  - Hyperthermia [Fatal]
  - Circulatory collapse [Fatal]
  - Disorientation [Fatal]
  - Blood creatine phosphokinase increased [Fatal]
  - Agitation [Fatal]
  - Aggression [Fatal]
  - Stress [Fatal]
  - Drug interaction [Fatal]
